FAERS Safety Report 12337038 (Version 1)
Quarter: 2016Q2

REPORT INFORMATION
  Report Type: Spontaneous
  Country: US (occurrence: None)
  Receive Date: 20160504
  Receipt Date: 20160504
  Transmission Date: 20160815
  Serious: Yes (Disabling, Other)
  Sender: FDA-Public Use
  Company Number: None

PATIENT
  Age: 70 Year
  Sex: Male
  Weight: 126.1 kg

DRUGS (18)
  1. ACTIGALL [Concomitant]
     Active Substance: URSODIOL
  2. LUNESTA [Concomitant]
     Active Substance: ESZOPICLONE
  3. PREDNISON [Concomitant]
     Active Substance: PREDNISONE
  4. BERBERINE VITE [Concomitant]
  5. MOTRIN [Concomitant]
     Active Substance: IBUPROFEN
  6. VITAMIN D [Concomitant]
     Active Substance: CHOLECALCIFEROL
  7. B-VITAMINS [Concomitant]
  8. FISH OIL [Concomitant]
     Active Substance: FISH OIL
  9. ZETIA [Suspect]
     Active Substance: EZETIMIBE
  10. ARTICHOKE. [Concomitant]
     Active Substance: ARTICHOKE
  11. MEDRAL [Concomitant]
  12. VIT C. [Concomitant]
  13. VITAMIN E [Concomitant]
     Active Substance: .ALPHA.-TOCOPHEROL
  14. ACETYLCYSTEINE. [Concomitant]
     Active Substance: ACETYLCYSTEINE
  15. TYLENOL [Concomitant]
     Active Substance: ACETAMINOPHEN
  16. MILK THISTLE [Concomitant]
     Active Substance: MILK THISTLE
  17. ALPHA LIPOIC ACID [Concomitant]
     Active Substance: .ALPHA.-LIPOIC ACID
  18. PECTICSOL [Concomitant]

REACTIONS (9)
  - Pharyngeal oedema [None]
  - Cholecystitis acute [None]
  - Influenza [None]
  - Myalgia [None]
  - Hepatic steatosis [None]
  - Overdose [None]
  - Vomiting [None]
  - Arthralgia [None]
  - Sinusitis [None]

NARRATIVE: CASE EVENT DATE: 201412
